FAERS Safety Report 9276609 (Version 1)
Quarter: 2013Q2

REPORT INFORMATION
  Report Type: Spontaneous
  Country: US (occurrence: US)
  Receive Date: 20130507
  Receipt Date: 20130507
  Transmission Date: 20140414
  Serious: No
  Sender: FDA-Public Use
  Company Number: US-ASTRAZENECA-2013SE27990

PATIENT
  Age: 66 Year
  Sex: Male
  Weight: 72.1 kg

DRUGS (2)
  1. NEXIUM [Suspect]
     Indication: GASTROOESOPHAGEAL REFLUX DISEASE
     Route: 048
     Dates: start: 1998
  2. CLARITIN [Concomitant]
     Indication: MULTIPLE ALLERGIES

REACTIONS (2)
  - Dyspepsia [Unknown]
  - Blood pressure fluctuation [Unknown]
